FAERS Safety Report 8761038 (Version 5)
Quarter: 2013Q3

REPORT INFORMATION
  Report Type: Report from Study
  Country: JP (occurrence: JP)
  Receive Date: 20120830
  Receipt Date: 20130917
  Transmission Date: 20140515
  Serious: Yes (Other)
  Sender: FDA-Public Use
  Company Number: JP-VERTEX PHARMACEUTICAL INC.-AE-2012-007339

PATIENT
  Age: 55 Year
  Sex: Male

DRUGS (12)
  1. VX-950 (TELAPREVIR) [Suspect]
     Indication: CHRONIC HEPATITIS C
     Dosage: 2250 MG, QD
     Route: 048
     Dates: start: 20120508, end: 20120510
  2. PEGINTRON [Suspect]
     Indication: CHRONIC HEPATITIS C
     Dosage: 1.5 ?G/KG, QW
     Route: 058
     Dates: start: 20120508, end: 20120508
  3. PEGINTRON [Suspect]
     Dosage: 1.5 ?G/KG, QW
     Route: 058
     Dates: start: 20120612
  4. REBETOL [Suspect]
     Indication: CHRONIC HEPATITIS C
     Dosage: 1000 MG, QD
     Route: 048
     Dates: start: 20120508, end: 20120510
  5. REBETOL [Suspect]
     Dosage: 1000 MG, QD
     Route: 048
     Dates: start: 20120612, end: 20120716
  6. REBETOL [Suspect]
     Dosage: 600 MG, QD
     Route: 048
     Dates: start: 20120717
  7. LOXONIN [Suspect]
     Indication: PYREXIA
     Dosage: 180 MG, QD
     Route: 048
     Dates: start: 20120508
  8. MUCOSTA [Concomitant]
     Dosage: 300 MG, QD
     Route: 048
     Dates: start: 20120508
  9. EURASON [Concomitant]
     Dosage: UNK, PRN
     Route: 051
     Dates: start: 20120508, end: 20120612
  10. ALLEGRA [Concomitant]
     Dosage: 120 MG, QD
     Route: 048
     Dates: start: 20120510, end: 20120529
  11. MIXTURE OF DERMOVATE OINTMENT 0.05% 5G AND WHITE PETROLATUM 5G [Concomitant]
     Dosage: UNK, QD
     Route: 051
     Dates: start: 20120510, end: 20120529
  12. VOLTAREN [Concomitant]
     Dosage: 25 MG, QD/PRN
     Route: 054
     Dates: start: 20120619

REACTIONS (1)
  - Drug eruption [Recovered/Resolved]
